FAERS Safety Report 23979903 (Version 2)
Quarter: 2024Q4

REPORT INFORMATION
  Report Type: Report from Study
  Country: US (occurrence: US)
  Receive Date: 20240617
  Receipt Date: 20241016
  Transmission Date: 20250115
  Serious: Yes (Hospitalization)
  Sender: ABBVIE
  Company Number: US-ABBVIE-5791801

PATIENT
  Age: 77 Year
  Sex: Female
  Weight: 45 kg

DRUGS (2)
  1. DUOPA [Suspect]
     Active Substance: CARBIDOPA\LEVODOPA
     Indication: Parkinson^s disease
     Dosage: UNKNOWN
     Route: 050
     Dates: start: 20210618
  2. DUOPA [Suspect]
     Active Substance: CARBIDOPA\LEVODOPA
     Route: 050

REACTIONS (12)
  - Anaesthesia [Recovered/Resolved]
  - Gait disturbance [Not Recovered/Not Resolved]
  - Device occlusion [Not Recovered/Not Resolved]
  - Drug ineffective [Not Recovered/Not Resolved]
  - Musculoskeletal disorder [Not Recovered/Not Resolved]
  - Hypokinesia [Unknown]
  - Device alarm issue [Unknown]
  - Limb injury [Unknown]
  - Feeling abnormal [Unknown]
  - Device kink [Unknown]
  - Tremor [Unknown]
  - Nervousness [Unknown]

NARRATIVE: CASE EVENT DATE: 20240603
